FAERS Safety Report 16526381 (Version 1)
Quarter: 2019Q3

REPORT INFORMATION
  Report Type: Spontaneous
  Country: US (occurrence: US)
  Receive Date: 20190703
  Receipt Date: 20190703
  Transmission Date: 20191004
  Serious: No
  Sender: FDA-Public Use
  Company Number: US-009507513-1906USA001692

PATIENT
  Sex: Female

DRUGS (4)
  1. PRINIVIL [Suspect]
     Active Substance: LISINOPRIL
     Dosage: ONE HALF TABLET TWICE
     Route: 048
  2. PRINIVIL [Suspect]
     Active Substance: LISINOPRIL
     Indication: HYPERTENSION
     Dosage: 5 MG ONCE DAILY
     Route: 048
     Dates: start: 2004
  3. SPIRONOLACTONE. [Concomitant]
     Active Substance: SPIRONOLACTONE
     Indication: HYPERTENSION
     Dosage: 0.5 MILLIGRAM, QD
  4. LISINOPRIL. [Suspect]
     Active Substance: LISINOPRIL
     Indication: HYPERTENSION
     Dosage: UNK

REACTIONS (6)
  - Drug ineffective [Unknown]
  - Inability to afford medication [Unknown]
  - Inappropriate schedule of product administration [Unknown]
  - Dizziness [Recovered/Resolved]
  - Wrong technique in product usage process [Unknown]
  - Blood pressure increased [Unknown]
